FAERS Safety Report 6391134-3 (Version None)
Quarter: 2009Q4

REPORT INFORMATION
  Report Type: 
  Country: None (occurrence: None)
  Receive Date: 20091005
  Receipt Date: 20090924
  Transmission Date: 20100525
  Serious: Yes (Hospitalization)
  Sender: FDA-Public Use
  Company Number: 2009010722

PATIENT
  Sex: Female

DRUGS (1)
  1. ACTIQ [Suspect]
     Indication: PAIN
     Dosage: 1200 MCG (400 MCG, 3 IN 1 D), BU
     Route: 002

REACTIONS (1)
  - DRUG PRESCRIBING ERROR [None]
